FAERS Safety Report 5751982-7 (Version None)
Quarter: 2008Q2

REPORT INFORMATION
  Report Type: 
  Country: None (occurrence: None)
  Receive Date: 20080527
  Receipt Date: 20080513
  Transmission Date: 20081010
  Serious: No
  Sender: FDA-Public Use
  Company Number: US023523

PATIENT
  Sex: Female

DRUGS (4)
  1. FENTORA [Suspect]
     Indication: FIBROMYALGIA
     Dosage: 800 UG BUCCA
     Route: 002
  2. FENTORA [Suspect]
     Indication: FIBROMYALGIA
     Dosage: 200 UG BUCCAL
     Route: 002
  3. FENTANYL CITRATE [Concomitant]
  4. FENTANYL TRANSDERMAL SYSTEM [Concomitant]

REACTIONS (1)
  - DRUG PRESCRIBING ERROR [None]
